FAERS Safety Report 10387669 (Version 1)
Quarter: 2014Q3

REPORT INFORMATION
  Report Type: Spontaneous
  Country: US (occurrence: None)
  Receive Date: 20140814
  Receipt Date: 20140814
  Transmission Date: 20150326
  Serious: Yes (Disabling)
  Sender: FDA-Public Use
  Company Number: None

PATIENT
  Age: 17 Year
  Sex: Female
  Weight: 83.01 kg

DRUGS (1)
  1. ZYPREXA [Suspect]
     Active Substance: OLANZAPINE
     Indication: AFFECTIVE DISORDER
     Dosage: 1 PILL  AT BEDTIME  TAKEN BY MOUTH
     Route: 048
     Dates: start: 20140301, end: 20140813

REACTIONS (4)
  - Blood glucose increased [None]
  - Deep vein thrombosis [None]
  - Blood cholesterol increased [None]
  - Weight increased [None]

NARRATIVE: CASE EVENT DATE: 20140722
